FAERS Safety Report 15307378 (Version 2)
Quarter: 2018Q3

REPORT INFORMATION
  Report Type: Report from Study
  Country: KR (occurrence: KR)
  Receive Date: 20180822
  Receipt Date: 20180904
  Transmission Date: 20181010
  Serious: Yes (Hospitalization)
  Sender: FDA-Public Use
  Company Number: KR-B.I. PHARMACEUTICALS,INC./RIDGEFIELD-2018-BI-041251

PATIENT
  Age: 57 Year
  Sex: Female
  Weight: 43.1 kg

DRUGS (11)
  1. ARESTAL [Concomitant]
     Active Substance: LOPERAMIDE OXIDE
     Route: 065
     Dates: start: 20160620, end: 20160703
  2. VASELINE PURE [Concomitant]
     Active Substance: PETROLATUM
     Indication: URTICARIA
     Route: 065
     Dates: start: 20160429, end: 201606
  3. HYALQ [Concomitant]
     Indication: VISUAL IMPAIRMENT
     Dosage: OPHTHALMIC SOLUTION
     Route: 065
     Dates: start: 20160516, end: 201606
  4. GILOTRIF [Suspect]
     Active Substance: AFATINIB
     Dosage: .
     Route: 048
     Dates: start: 20160727
  5. MEGESTROL [Concomitant]
     Active Substance: MEGESTROL
     Indication: DECREASED APPETITE
     Route: 065
     Dates: start: 20160530, end: 20160702
  6. GILOTRIF [Suspect]
     Active Substance: AFATINIB
     Indication: NON-SMALL CELL LUNG CANCER
     Dosage: .
     Route: 048
     Dates: start: 20160427, end: 20160508
  7. GILOTRIF [Suspect]
     Active Substance: AFATINIB
     Dosage: .
     Route: 048
     Dates: start: 20160523, end: 20160703
  8. ARESTAL [Concomitant]
     Active Substance: LOPERAMIDE OXIDE
     Indication: DIARRHOEA
     Route: 065
     Dates: start: 20160509, end: 20160509
  9. ARESTAL [Concomitant]
     Active Substance: LOPERAMIDE OXIDE
     Route: 065
     Dates: start: 20160510, end: 20160510
  10. GILOTRIF [Suspect]
     Active Substance: AFATINIB
     Route: 048
     Dates: start: 20160509, end: 20160512
  11. LACTICARE HC [Concomitant]
     Indication: FOLLICULITIS
     Route: 065
     Dates: start: 20160506, end: 201606

REACTIONS (1)
  - Haematochezia [Recovered/Resolved]

NARRATIVE: CASE EVENT DATE: 20160627
